FAERS Safety Report 4706600-3 (Version None)
Quarter: 2005Q3

REPORT INFORMATION
  Report Type: 
  Country: None (occurrence: None)
  Receive Date: 20050705
  Receipt Date: 20050301
  Transmission Date: 20060218
  Serious: Yes (Hospitalization)
  Sender: FDA-Public Use
  Company Number: US-SANOFI-SYNTHELABO-A03200500578

PATIENT
  Sex: Female
  Weight: 63.5 kg

DRUGS (6)
  1. ELOXATIN [Suspect]
     Indication: COLON CANCER METASTATIC
     Route: 042
     Dates: start: 20050214, end: 20050214
  2. FLUOROURACIL [Concomitant]
     Route: 042
  3. LEUCOVORIN [Concomitant]
     Route: 042
  4. AVASTIN [Concomitant]
     Route: 042
  5. KYTRIL [Concomitant]
     Dosage: UNK
     Route: 042
  6. DECADRON [Concomitant]
     Dosage: UNK
     Route: 042

REACTIONS (4)
  - CONVULSION [None]
  - FALL [None]
  - FEELING ABNORMAL [None]
  - INFUSION RELATED REACTION [None]
